FAERS Safety Report 15023368 (Version 1)
Quarter: 2018Q2

REPORT INFORMATION
  Report Type: Spontaneous
  Country: US (occurrence: US)
  Receive Date: 20180618
  Receipt Date: 20180618
  Transmission Date: 20180711
  Serious: No
  Sender: FDA-Public Use
  Company Number: US-TEVA-2018-US-902627

PATIENT

DRUGS (1)
  1. CLONAZEPAM. [Suspect]
     Active Substance: CLONAZEPAM
     Indication: GENERALISED ANXIETY DISORDER
     Route: 065
     Dates: start: 20180514

REACTIONS (2)
  - Circumstance or information capable of leading to medication error [Unknown]
  - Drug ineffective [Unknown]
